FAERS Safety Report 21615642 (Version 1)
Quarter: 2022Q4

REPORT INFORMATION
  Report Type: Spontaneous
  Country: CN (occurrence: None)
  Receive Date: 20221118
  Receipt Date: 20221118
  Transmission Date: 20230113
  Serious: Yes (Other)
  Sender: FDA-Public Use
  Company Number: 2022A379844

PATIENT
  Age: 56 Year
  Sex: Male
  Weight: 55 kg

DRUGS (10)
  1. DAPAGLIFLOZIN [Suspect]
     Active Substance: DAPAGLIFLOZIN
     Indication: Type 2 diabetes mellitus
     Dosage: 10.000000 MG?ONCE A DAY
     Route: 048
     Dates: start: 20221104, end: 20221111
  2. DAPAGLIFLOZIN [Suspect]
     Active Substance: DAPAGLIFLOZIN
     Indication: Chronic gastritis
     Dosage: 10.000000 MG?ONCE A DAY
     Route: 048
     Dates: start: 20221104, end: 20221111
  3. METFORMIN HYDROCHLORIDE [Suspect]
     Active Substance: METFORMIN HYDROCHLORIDE
     Indication: Type 2 diabetes mellitus
     Dosage: 500.000000 MG, 3 TIMES A DAY, ROUTE OF ADMINISTRATION: ORAL
     Route: 048
     Dates: start: 20221104, end: 20221111
  4. METFORMIN HYDROCHLORIDE [Suspect]
     Active Substance: METFORMIN HYDROCHLORIDE
     Indication: Chronic gastritis
     Dosage: 500.000000 MG, 3 TIMES A DAY, ROUTE OF ADMINISTRATION: ORAL
     Route: 048
     Dates: start: 20221104, end: 20221111
  5. ILAPRAZOLE [Suspect]
     Active Substance: ILAPRAZOLE
     Indication: Type 2 diabetes mellitus
     Dosage: DOSE: 5.000000 MG, ONCE A DAY
     Route: 048
     Dates: start: 20221104, end: 20221111
  6. ILAPRAZOLE [Suspect]
     Active Substance: ILAPRAZOLE
     Indication: Chronic gastritis
     Dosage: DOSE: 5.000000 MG, ONCE A DAY
     Route: 048
     Dates: start: 20221104, end: 20221111
  7. ASPIRIN [Suspect]
     Active Substance: ASPIRIN
     Indication: Type 2 diabetes mellitus
     Dosage: 100.000000 MG?ONCE A DAY
     Route: 048
     Dates: start: 20221104, end: 20221111
  8. ASPIRIN [Suspect]
     Active Substance: ASPIRIN
     Indication: Chronic gastritis
     Dosage: 100.000000 MG?ONCE A DAY
     Route: 048
     Dates: start: 20221104, end: 20221111
  9. HUMAN INTERFERON [Concomitant]
     Dosage: SPRAY 20ML 1 BOTTLE, 1ML/TIME, FOR EXTERNAL USE, TID 5D
  10. MUCOPOLYSACCHARIDE POLYSULFATE [Concomitant]
     Dosage: CREAM 14G 1 TUBE, 0.5G/TIME, FOR EXTERNAL USE, BID 7D

REACTIONS (2)
  - Oral herpes [Unknown]
  - Herpes simplex [Unknown]

NARRATIVE: CASE EVENT DATE: 20221106
